FAERS Safety Report 6094876-2 (Version None)
Quarter: 2009Q1

REPORT INFORMATION
  Report Type: 
  Country: None (occurrence: None)
  Receive Date: 20090227
  Receipt Date: 20090218
  Transmission Date: 20090719
  Serious: Yes (Other)
  Sender: FDA-Public Use
  Company Number: MY-JNJFOC-20090205352

PATIENT
  Age: 19 Year
  Sex: Male

DRUGS (1)
  1. TOPIRAMATE [Suspect]
     Indication: EPILEPSY
     Route: 048

REACTIONS (5)
  - AGGRESSION [None]
  - ANOREXIA [None]
  - HALLUCINATION, VISUAL [None]
  - HYPOKINESIA [None]
  - WEIGHT DECREASED [None]
